FAERS Safety Report 13156405 (Version 4)
Quarter: 2019Q1

REPORT INFORMATION
  Report Type: Spontaneous
  Country: FR (occurrence: FR)
  Receive Date: 20170126
  Receipt Date: 20190326
  Transmission Date: 20190417
  Serious: Yes (Other)
  Sender: FDA-Public Use
  Company Number: FR-PFM-2017-00354

PATIENT

DRUGS (2)
  1. HEMANGIOL [Suspect]
     Active Substance: PROPRANOLOL HYDROCHLORIDE
     Indication: INFANTILE HAEMANGIOMA
     Dosage: 2 MG/KG, QD (1/DAY)
     Route: 048
  2. HEMANGIOL [Suspect]
     Active Substance: PROPRANOLOL HYDROCHLORIDE
     Dosage: 3 MG/KG/DAY
     Route: 048

REACTIONS (3)
  - Dermatitis psoriasiform [Recovered/Resolved]
  - Off label use [Unknown]
  - Intentional product use issue [Unknown]
